FAERS Safety Report 14965807 (Version 1)
Quarter: 2018Q2

REPORT INFORMATION
  Report Type: Spontaneous
  Country: US (occurrence: US)
  Receive Date: 20180602
  Receipt Date: 20180602
  Transmission Date: 20180711
  Serious: Yes (Death, Life-Threatening)
  Sender: FDA-Public Use
  Company Number: US-TEVA-2018-US-901498

PATIENT
  Sex: Female

DRUGS (1)
  1. AMIODARONE [Suspect]
     Active Substance: AMIODARONE
     Indication: ATRIAL FIBRILLATION

REACTIONS (16)
  - Fatigue [Unknown]
  - Nervousness [Unknown]
  - Lung disorder [Unknown]
  - Death [Fatal]
  - Off label use [Unknown]
  - Cough [Unknown]
  - Gait disturbance [Unknown]
  - Dyspnoea [Unknown]
  - Wheezing [Unknown]
  - Depression [Unknown]
  - Pulmonary toxicity [Unknown]
  - Pulmonary hypertension [Unknown]
  - Pain [Unknown]
  - Asthenia [Unknown]
  - Anxiety [Unknown]
  - Weight fluctuation [Unknown]

NARRATIVE: CASE EVENT DATE: 201606
